FAERS Safety Report 5035564-0 (Version None)
Quarter: 2006Q2

REPORT INFORMATION
  Report Type: 
  Country: None (occurrence: None)
  Receive Date: 20060526
  Receipt Date: 20060204
  Transmission Date: 20061013
  Serious: No
  Sender: FDA-Public Use
  Company Number: 218757

PATIENT
  Age: 58 Year
  Sex: Male

DRUGS (1)
  1. RAPTIVA [Suspect]
     Indication: PSORIASIS
     Dosage: 1 MG/KG
     Dates: start: 20021001

REACTIONS (1)
  - PROSTATIC SPECIFIC ANTIGEN INCREASED [None]
